FAERS Safety Report 12108452 (Version 2)
Quarter: 2016Q1

REPORT INFORMATION
  Report Type: Spontaneous
  Country: NL (occurrence: NL)
  Receive Date: 20160224
  Receipt Date: 20160303
  Transmission Date: 20160526
  Serious: Yes (Death)
  Sender: FDA-Public Use
  Company Number: NL-ACTELION-A-CH2016-131388

PATIENT
  Age: 51 Year
  Sex: Female

DRUGS (1)
  1. VELETRI [Suspect]
     Active Substance: EPOPROSTENOL
     Indication: PULMONARY ARTERIAL HYPERTENSION
     Dosage: UNK
     Route: 042
     Dates: start: 20150331, end: 20160211

REACTIONS (4)
  - Pulmonary haemorrhage [Fatal]
  - Pulmonary arterial hypertension [Not Recovered/Not Resolved]
  - Cardiac failure [Fatal]
  - Condition aggravated [Not Recovered/Not Resolved]
